FAERS Safety Report 13918970 (Version 1)
Quarter: 2017Q3

REPORT INFORMATION
  Report Type: Spontaneous
  Country: US (occurrence: None)
  Receive Date: 20170829
  Receipt Date: 20170829
  Transmission Date: 20171127
  Serious: No
  Sender: FDA-Public Use
  Company Number: None

PATIENT
  Age: 73 Year
  Sex: Female

DRUGS (9)
  1. OCALIVA [Suspect]
     Active Substance: OBETICHOLIC ACID
     Indication: BILIARY CIRRHOSIS PRIMARY
     Route: 048
     Dates: start: 20170705
  2. HYDROCHLOROT [Concomitant]
     Active Substance: HYDROCHLOROTHIAZIDE
  3. ATORVAST [Concomitant]
  4. ACYCL [Concomitant]
  5. MULT VIT [Concomitant]
  6. LEVOTHYTHY [Concomitant]
  7. OMEPRAM [Concomitant]
  8. CEPHAL [Concomitant]
  9. GABAP [Concomitant]

REACTIONS (1)
  - Diarrhoea [None]

NARRATIVE: CASE EVENT DATE: 201708
